FAERS Safety Report 5149827-1 (Version None)
Quarter: 2006Q4

REPORT INFORMATION
  Report Type: 
  Country: None (occurrence: None)
  Receive Date: 20061113
  Receipt Date: 20061019
  Transmission Date: 20070319
  Serious: Yes (Death, Hospitalization)
  Sender: FDA-Public Use
  Company Number: KR-SANOFI-SYNTHELABO-F01200602169

PATIENT
  Sex: Male
  Weight: 47.8 kg

DRUGS (7)
  1. CODAFEN [Concomitant]
     Route: 048
     Dates: start: 20060809, end: 20060823
  2. ONDANSETRON HCL [Concomitant]
     Indication: PREMEDICATION
     Dosage: 8 MG
     Route: 042
     Dates: start: 20060809, end: 20060809
  3. ONDANSETRON HCL [Concomitant]
     Dosage: 16 MG
     Route: 048
     Dates: start: 20060810, end: 20060814
  4. DEXAMETHASONE TAB [Concomitant]
     Indication: PREMEDICATION
     Dosage: 10 MG
     Route: 042
     Dates: start: 20060809, end: 20060809
  5. DEXAMETHASONE TAB [Concomitant]
     Dosage: 8 MG
     Route: 048
     Dates: start: 20060810, end: 20060812
  6. OXALIPLATIN [Suspect]
     Indication: GASTRIC CANCER
     Dosage: 195 MG
     Route: 041
     Dates: start: 20060809, end: 20060809
  7. TS-1 [Suspect]
     Dosage: 75 MG
     Route: 048
     Dates: start: 20060809, end: 20060823

REACTIONS (4)
  - FEBRILE NEUTROPENIA [None]
  - PANCYTOPENIA [None]
  - PNEUMONIA [None]
  - SEPTIC SHOCK [None]
